FAERS Safety Report 23202148 (Version 11)
Quarter: 2025Q4

REPORT INFORMATION
  Report Type: Spontaneous
  Country: EU (occurrence: EU)
  Receive Date: 20231120
  Receipt Date: 20251216
  Transmission Date: 20260117
  Serious: Yes (Death, Other)
  Sender: NOVARTIS
  Company Number: EU-ROCHE-3452556

PATIENT
  Age: 52 Year
  Sex: Female
  Weight: 58 kg

DRUGS (129)
  1. TYKERB [Suspect]
     Active Substance: LAPATINIB DITOSYLATE
     Indication: HER2 positive breast cancer
     Dosage: 1000 MG, QD (MOST RECENT DOSE: 23/JUL/2019)
     Route: 048
     Dates: start: 20190207, end: 20190723
  2. CARBOPLATIN [Suspect]
     Active Substance: CARBOPLATIN
     Indication: HER2 positive breast cancer
     Dosage: UNK, Q3W (MOST RECENT DOSE: 30/DEC/2022)
     Route: 042
     Dates: start: 20221214, end: 20221230
  3. FILGRASTIM [Suspect]
     Active Substance: FILGRASTIM
     Indication: Product used for unknown indication
     Dosage: UNK
     Route: 065
     Dates: end: 20221230
  4. FILGRASTIM [Suspect]
     Active Substance: FILGRASTIM
     Dosage: UNK
     Route: 065
     Dates: start: 20221230, end: 20221230
  5. PACLITAXEL [Suspect]
     Active Substance: PACLITAXEL
     Indication: HER2 positive breast cancer
     Dosage: UNK, Q3W, UNK, Q3W (MOST RECENT DOSE: 03/JAN/2021)
     Route: 042
     Dates: start: 20201013, end: 20210103
  6. PACLITAXEL [Suspect]
     Active Substance: PACLITAXEL
     Dosage: UNK, Q3W, NK, Q3W (MOST RECENT DOSE: 30/DEC/2022)
     Route: 042
     Dates: start: 20221214
  7. XELODA [Suspect]
     Active Substance: CAPECITABINE
     Indication: HER2 positive breast cancer
     Dosage: 1800 MG, BID
     Route: 048
     Dates: start: 20180529, end: 20180820
  8. XELODA [Suspect]
     Active Substance: CAPECITABINE
     Indication: Product used for unknown indication
     Dosage: 1500 MG, BID
     Route: 048
     Dates: start: 20180821, end: 20181114
  9. XELODA [Suspect]
     Active Substance: CAPECITABINE
     Dosage: 1300 MG, BID
     Route: 048
     Dates: start: 20181115, end: 20181206
  10. XELODA [Suspect]
     Active Substance: CAPECITABINE
     Dosage: 1500 MG
     Route: 048
     Dates: start: 20180821, end: 20181114
  11. XELODA [Suspect]
     Active Substance: CAPECITABINE
     Dosage: 1800 MG, QD
     Route: 048
     Dates: start: 20180529, end: 20180820
  12. XELODA [Suspect]
     Active Substance: CAPECITABINE
     Dosage: 1300 MG, QD
     Route: 048
     Dates: start: 20181115, end: 20181206
  13. CAPECITABINE [Suspect]
     Active Substance: CAPECITABINE
     Indication: HER2 positive breast cancer
     Dosage: 1800 UG, BID
     Route: 065
     Dates: start: 20180529, end: 20180529
  14. CAPECITABINE [Suspect]
     Active Substance: CAPECITABINE
     Dosage: 1500 UG, BID
     Route: 065
     Dates: start: 20180821, end: 20180821
  15. CAPECITABINE [Suspect]
     Active Substance: CAPECITABINE
     Dosage: 1500 UG, BID
     Route: 048
     Dates: start: 20180821, end: 20181114
  16. CAPECITABINE [Suspect]
     Active Substance: CAPECITABINE
     Dosage: 1300 UG, BID
     Route: 048
     Dates: start: 20181115, end: 20181206
  17. TAXOL [Suspect]
     Active Substance: PACLITAXEL
     Indication: HER2 positive breast cancer
     Dosage: UNK, QW (MOST RECENT DOSE: 11/FEB/2020)
     Route: 042
     Dates: start: 20190813, end: 20200211
  18. TAXOL [Suspect]
     Active Substance: PACLITAXEL
     Dosage: UNK, QW (MOST RECENT DOSE: 11/FEB/2020)
     Route: 042
     Dates: start: 20190813, end: 20200211
  19. CYTOXAN [Suspect]
     Active Substance: CYCLOPHOSPHAMIDE
     Indication: HER2 positive breast cancer
     Dosage: UNK, Q3W (MOST RECENT DOSE: 03/JAN/2021)
     Route: 042
     Dates: start: 20201013, end: 20210103
  20. KADCYLA [Suspect]
     Active Substance: ADO-TRASTUZUMAB EMTANSINE
     Indication: HER2 positive breast cancer
     Dosage: 190.8 MG, Q3W (MOST RECENT DOSE: 08/MAR/2018, 17/APR/2018)
     Route: 042
     Dates: start: 20170614, end: 20180308
  21. KADCYLA [Suspect]
     Active Substance: ADO-TRASTUZUMAB EMTANSINE
     Dosage: 190.8 MG, Q3W
     Route: 042
     Dates: start: 20180417, end: 20180508
  22. KADCYLA [Suspect]
     Active Substance: ADO-TRASTUZUMAB EMTANSINE
     Dosage: 190.8 MG, Q3W
     Route: 042
     Dates: start: 20180308
  23. TAXOTERE [Suspect]
     Active Substance: DOCETAXEL
     Indication: HER2 positive breast cancer
     Dosage: UNK, Q3W (MOST RECENT DOSE: 29/JUN/2021)
     Route: 042
     Dates: start: 20210104, end: 20210629
  24. TAXOTERE [Suspect]
     Active Substance: DOCETAXEL
     Dosage: UNK, Q3W
     Route: 042
     Dates: start: 20210629
  25. TREXALL [Suspect]
     Active Substance: METHOTREXATE SODIUM
     Indication: HER2 positive breast cancer
     Dosage: UNK, Q3W (MOST RECENT DOSE: 03/JAN/2021)
     Route: 042
     Dates: start: 20201013, end: 20210103
  26. ADRUCIL [Suspect]
     Active Substance: FLUOROURACIL
     Indication: HER2 positive breast cancer
     Dosage: UNK, Q3W (MOST RECENT DOSE: 03/JAN/2021)
     Route: 042
     Dates: start: 20201013, end: 20210103
  27. ADRUCIL [Suspect]
     Active Substance: FLUOROURACIL
     Dosage: UNK, QW
     Route: 042
     Dates: start: 20200310
  28. NAVELBINE [Suspect]
     Active Substance: VINORELBINE TARTRATE
     Indication: HER2 positive breast cancer
     Dosage: UNK, QW (MOST RECENT DOSE: 01/OCT/2020)
     Route: 042
     Dates: start: 20200310, end: 20201001
  29. NAVELBINE [Suspect]
     Active Substance: VINORELBINE TARTRATE
     Dosage: UNK, QW
     Route: 042
     Dates: start: 20201001
  30. FLUOROURACIL [Suspect]
     Active Substance: FLUOROURACIL
     Indication: HER2 positive breast cancer
     Dosage: UNK, Q3W, (MOST RECENT DOSE: 03/JAN/2021, (EFUDEX  ))
     Route: 042
     Dates: start: 20201013, end: 20210103
  31. FAM-TRASTUZUMAB DERUXTECAN-NXKI [Suspect]
     Active Substance: FAM-TRASTUZUMAB DERUXTECAN-NXKI
     Indication: HER2 positive breast cancer
     Dosage: UNK, Q3W
     Route: 042
     Dates: start: 20210714, end: 20221124
  32. FAM-TRASTUZUMAB DERUXTECAN-NXKI [Suspect]
     Active Substance: FAM-TRASTUZUMAB DERUXTECAN-NXKI
     Dosage: UNK (29/JUL/2019)
     Route: 065
     Dates: start: 20190308, end: 20190308
  33. FAM-TRASTUZUMAB DERUXTECAN-NXKI [Suspect]
     Active Substance: FAM-TRASTUZUMAB DERUXTECAN-NXKI
     Dosage: 190.8 UG, Q3W (18/MAR/2018)
     Route: 065
     Dates: start: 20170614
  34. FLUOROPLEX [Suspect]
     Active Substance: FLUOROURACIL
     Indication: HER2 positive breast cancer
     Dosage: UNK, Q3W (MOST RECENT DOSE: 03/JAN/2021)
     Route: 042
     Dates: start: 20201013, end: 20210103
  35. GEMZAR [Suspect]
     Active Substance: GEMCITABINE HYDROCHLORIDE
     Indication: HER2 positive breast cancer
     Dosage: UNK, Q3W (MOST RECENT DOSE: 30/DEC/2022)
     Route: 065
     Dates: start: 20221214, end: 20221230
  36. GEMZAR [Suspect]
     Active Substance: GEMCITABINE HYDROCHLORIDE
     Dosage: UNK
     Route: 042
     Dates: start: 20221230
  37. HERCEPTIN [Suspect]
     Active Substance: TRASTUZUMAB
     Indication: HER2 positive breast cancer
     Dosage: UNK, (MOST RECENT DOSE PRIOR TO THE EVENT: 13/OCT/2020, 14/DEC/2022)
     Route: 058
     Dates: start: 20180529, end: 20190729
  38. HERCEPTIN [Suspect]
     Active Substance: TRASTUZUMAB
     Dosage: UNK, Q3W
     Route: 042
     Dates: start: 20221214, end: 20221230
  39. HERCEPTIN [Suspect]
     Active Substance: TRASTUZUMAB
     Dosage: UNK, Q3W
     Route: 058
     Dates: start: 20180529, end: 20190117
  40. HERCEPTIN [Suspect]
     Active Substance: TRASTUZUMAB
     Dosage: UNK, Q3W
     Route: 065
     Dates: start: 2019, end: 20190729
  41. HERCEPTIN [Suspect]
     Active Substance: TRASTUZUMAB
     Dosage: UNK, Q3W
     Route: 058
     Dates: start: 20180529, end: 20190729
  42. HERCEPTIN [Suspect]
     Active Substance: TRASTUZUMAB
     Dosage: UNK, Q3W
     Route: 058
     Dates: start: 20180529
  43. HERCEPTIN [Suspect]
     Active Substance: TRASTUZUMAB
     Dosage: UNK, Q3W
     Route: 058
     Dates: start: 20190117
  44. HERCEPTIN [Suspect]
     Active Substance: TRASTUZUMAB
     Dosage: UNK, (MOST RECENT DOSE PRIOR TO THE EVENT: 13/OCT/2020, 14/DEC/2022)
     Route: 065
     Dates: start: 20180529, end: 20190729
  45. PARAPLATIN [Suspect]
     Active Substance: CARBOPLATIN
     Indication: HER2 positive breast cancer
     Dosage: UNK, Q3W (MOST RECENT DOSE: 30/DEC/2022)
     Route: 042
     Dates: start: 20221214, end: 20221230
  46. PERJETA [Suspect]
     Active Substance: PERTUZUMAB
     Indication: HER2 positive breast cancer
     Dosage: UNK, Q3W (MOST RECENT DOSE: 18/FEB/2020)
     Route: 042
     Dates: start: 20190903, end: 20200218
  47. PERJETA [Suspect]
     Active Substance: PERTUZUMAB
     Dosage: UNK, Q3W (MOST RECENT DOSE: 18/FEB/2020)
     Route: 042
     Dates: start: 20190903, end: 20200218
  48. PERJETA [Suspect]
     Active Substance: PERTUZUMAB
     Dosage: UNK, Q3W
     Route: 042
     Dates: start: 20190903
  49. DOCETAXEL [Suspect]
     Active Substance: DOCETAXEL
     Indication: HER2 positive breast cancer
     Dosage: UNK (3 WEEKS), TAXOTERE SOLUTION FOR INJECTION
     Route: 042
     Dates: start: 20210104, end: 20210629
  50. METHOTREXATE [Suspect]
     Active Substance: METHOTREXATE
     Indication: HER2 positive breast cancer
     Dosage: UNK
     Route: 042
     Dates: start: 20201013, end: 20210103
  51. EFUDEX [Suspect]
     Active Substance: FLUOROURACIL
     Indication: HER2 positive breast cancer
     Dosage: UNK, Q3W (MOST RECENT DOSE: 03/JAN/2021)
     Route: 042
     Dates: start: 20201013, end: 20210103
  52. GEMCITABINE [Suspect]
     Active Substance: GEMCITABINE
     Indication: HER2 positive breast cancer
     Dosage: UNK, Q3W (UNK, Q3W(MOST RECENT DOSE: 30/DEC/2022), GEMZAR)
     Route: 042
     Dates: start: 20221214, end: 20221230
  53. GEMCITABINE [Suspect]
     Active Substance: GEMCITABINE
     Dosage: UNK
     Route: 042
     Dates: end: 20221230
  54. NALOXONE [Concomitant]
     Active Substance: NALOXONE
     Indication: Product used for unknown indication
     Dosage: 2.5 MG (ONGOING = NOT CHECKED)
     Route: 065
     Dates: end: 20221230
  55. NALOXONE [Concomitant]
     Active Substance: NALOXONE
     Dosage: 2.5 MG (ONGOING = NOT CHECKED)
     Route: 065
     Dates: start: 20221230, end: 20221230
  56. IVABRADINE [Concomitant]
     Active Substance: IVABRADINE
     Indication: Ejection fraction decreased
     Dosage: UNK
     Route: 065
     Dates: start: 20180308, end: 20221230
  57. ZOLEDRONIC ACID [Concomitant]
     Active Substance: ZOLEDRONIC ACID
     Indication: Product used for unknown indication
     Dosage: ONGOING = NOT CHECKED
     Route: 065
     Dates: start: 20170509, end: 20221230
  58. IPRATROPIUM BROMIDE [Concomitant]
     Active Substance: IPRATROPIUM BROMIDE
     Indication: Product used for unknown indication
     Dosage: UNK (ONGOING = NOT CHECKED, 1.00 AMPULE)
     Route: 065
     Dates: end: 20221230
  59. IPRATROPIUM BROMIDE [Concomitant]
     Active Substance: IPRATROPIUM BROMIDE
     Dosage: UNK, (ONGOING = NOT CHECKED, 1.00 AMPULE)
     Route: 065
     Dates: end: 20221230
  60. IPRATROPIUM BROMIDE [Concomitant]
     Active Substance: IPRATROPIUM BROMIDE
     Dosage: UNK, (ONGOING = NOT CHECKED, 1.00 AMPULE)
     Route: 065
     Dates: end: 20221230
  61. IPRATROPIUM BROMIDE [Concomitant]
     Active Substance: IPRATROPIUM BROMIDE
     Dosage: UNK, (ONGOING = NOT CHECKED, 1.00 AMPULE)
     Route: 065
     Dates: end: 20221230
  62. IPRATROPIUM BROMIDE [Concomitant]
     Active Substance: IPRATROPIUM BROMIDE
     Dosage: ONGOING = NOT CHECKED, 1.00 AMPULE
     Route: 065
     Dates: end: 20221230
  63. IPRATROPIUM BROMIDE [Concomitant]
     Active Substance: IPRATROPIUM BROMIDE
     Dosage: ONGOING = NOT CHECKED, 1.00 AMPULE
     Route: 065
     Dates: start: 20221230, end: 20221230
  64. CALCIUM CARBONATE [Concomitant]
     Active Substance: CALCIUM CARBONATE
     Indication: Product used for unknown indication
     Dosage: UNK (ONGOING = NOT CHECKED)
     Route: 065
     Dates: end: 20221230
  65. CALCIUM CARBONATE [Concomitant]
     Active Substance: CALCIUM CARBONATE
     Dosage: UNK, (ONGOING = NOT CHECKED)
     Route: 065
     Dates: end: 20221230
  66. CALCIUM CARBONATE [Concomitant]
     Active Substance: CALCIUM CARBONATE
     Dosage: UNK, (ONGOING = NOT CHECKED)
     Route: 065
     Dates: end: 20221230
  67. CALCIUM CARBONATE [Concomitant]
     Active Substance: CALCIUM CARBONATE
     Dosage: UNK, (ONGOING = NOT CHECKED)
     Route: 065
     Dates: end: 20221230
  68. CALCIUM CARBONATE [Concomitant]
     Active Substance: CALCIUM CARBONATE
     Dosage: ONGOING = NOT CHECKED
     Route: 065
     Dates: end: 20221230
  69. CALCIUM CARBONATE [Concomitant]
     Active Substance: CALCIUM CARBONATE
     Dosage: UNK, ONGOING
     Route: 065
     Dates: start: 20171129, end: 20221230
  70. LOPERAMIDE [Concomitant]
     Active Substance: LOPERAMIDE
     Indication: Product used for unknown indication
     Dosage: 2 MG (ONGOING = NOT CHECKED)
     Route: 065
     Dates: end: 20221230
  71. LOPERAMIDE [Concomitant]
     Active Substance: LOPERAMIDE
     Dosage: 2 MG (ONGOING = NOT CHECKED)
     Route: 065
     Dates: start: 20221230, end: 20221230
  72. RAMIPRIL [Concomitant]
     Active Substance: RAMIPRIL
     Indication: Ejection fraction decreased
     Dosage: ONGOING = NOT CHECKED
     Route: 065
     Dates: start: 20180308, end: 20221230
  73. PREGABALIN [Concomitant]
     Active Substance: PREGABALIN
     Indication: Product used for unknown indication
     Dosage: UNK (ONGOING = NOT CHECKED)
     Route: 065
     Dates: end: 20221230
  74. PREGABALIN [Concomitant]
     Active Substance: PREGABALIN
     Dosage: ONGOING = NOT CHECKED
     Route: 065
     Dates: end: 20221230
  75. PREGABALIN [Concomitant]
     Active Substance: PREGABALIN
     Dosage: ONGOING = NOT CHECKED
     Route: 065
     Dates: end: 20221230
  76. BUDESONIDO [Concomitant]
     Indication: Product used for unknown indication
     Dosage: UNK (ONGOING = NOT CHECKED)
     Route: 065
     Dates: end: 20221230
  77. BUDESONIDO [Concomitant]
     Dosage: UNK, (ONGOING = NOT CHECKED)
     Route: 065
     Dates: end: 20221230
  78. BUDESONIDO [Concomitant]
     Dosage: UNK, (ONGOING = NOT CHECKED)
     Route: 065
     Dates: end: 20221230
  79. ACETYLCYSTEINE [Concomitant]
     Active Substance: ACETYLCYSTEINE
     Indication: Product used for unknown indication
     Dosage: UNK (ONGOING = NOT CHECKED)
     Route: 065
     Dates: end: 20221230
  80. ACETYLCYSTEINE [Concomitant]
     Active Substance: ACETYLCYSTEINE
     Dosage: ONGOING = NOT CHECKED
     Route: 065
     Dates: end: 20221230
  81. ACETYLCYSTEINE [Concomitant]
     Active Substance: ACETYLCYSTEINE
     Dosage: ONGOING = NOT CHECKED
     Route: 065
     Dates: end: 20221230
  82. CETIRIZINE [Concomitant]
     Active Substance: CETIRIZINE HYDROCHLORIDE
     Indication: Product used for unknown indication
     Dosage: 10 MG (ONGOING = NOT CHECKED)
     Route: 065
     Dates: start: 20221230, end: 20221230
  83. NALOXONE HYDROCHLORIDE\OXYCODONE HYDROCHLORIDE [Concomitant]
     Active Substance: NALOXONE HYDROCHLORIDE\OXYCODONE HYDROCHLORIDE
     Indication: Product used for unknown indication
     Dosage: ONGOING = NOT CHECKED
     Route: 065
     Dates: start: 20170529, end: 20221230
  84. BACIDERMA [Concomitant]
     Indication: Product used for unknown indication
     Dosage: 10 G (ONGOING = NOT CHECKED)
     Route: 065
     Dates: end: 20221230
  85. BACIDERMA [Concomitant]
     Dosage: 10 G (ONGOING = NOT CHECKED)
     Route: 065
     Dates: start: 20221230, end: 20221230
  86. BISOPROLOL [Concomitant]
     Active Substance: BISOPROLOL
     Indication: Product used for unknown indication
     Dosage: ONGOING = NOT CHECKED
     Route: 065
     Dates: start: 20171129, end: 20221230
  87. BISOPROLOL [Concomitant]
     Active Substance: BISOPROLOL
     Dosage: UNK
     Route: 065
     Dates: start: 20221230
  88. METOCLOPRAMIDE [Concomitant]
     Active Substance: METOCLOPRAMIDE
     Indication: Product used for unknown indication
     Dosage: 10 MG (ONGOING = NOT CHECKED)
     Route: 065
     Dates: end: 20221230
  89. METOCLOPRAMIDE [Concomitant]
     Active Substance: METOCLOPRAMIDE
     Dosage: 10 MG (ONGOING = NOT CHECKED)
     Route: 065
     Dates: start: 20221230, end: 20221230
  90. CHOLECALCIFEROL [Concomitant]
     Active Substance: CHOLECALCIFEROL
     Indication: Product used for unknown indication
     Dosage: 400 IU (ONGOING = NOT CHECKED)
     Route: 065
     Dates: start: 20170509
  91. CHOLECALCIFEROL [Concomitant]
     Active Substance: CHOLECALCIFEROL
     Dosage: 400 IU, (ONGOING = NOT CHECKED)
     Route: 065
     Dates: end: 20221230
  92. CHOLECALCIFEROL [Concomitant]
     Active Substance: CHOLECALCIFEROL
     Dosage: ONGOING = NOT CHECKED
     Route: 065
     Dates: end: 20221230
  93. CHOLECALCIFEROL [Concomitant]
     Active Substance: CHOLECALCIFEROL
     Dosage: 400 IU
     Route: 065
     Dates: start: 20221230, end: 20221230
  94. ACETAMINOPHEN [Concomitant]
     Active Substance: ACETAMINOPHEN
     Indication: Product used for unknown indication
     Dosage: 1000 MG (ONGOING = NOT CHECKED)
     Route: 065
     Dates: end: 20221230
  95. ACETAMINOPHEN [Concomitant]
     Active Substance: ACETAMINOPHEN
     Dosage: 1000 MG,  (ONGOING = NOT CHECKED)
     Route: 065
     Dates: start: 20221230, end: 20221230
  96. OXYCODONE [Concomitant]
     Active Substance: OXYCODONE
     Indication: Product used for unknown indication
     Dosage: 5 MG (ONGOING = NOT CHECKED)
     Route: 065
     Dates: start: 20170529, end: 20221230
  97. OXYCODONE [Concomitant]
     Active Substance: OXYCODONE
     Dosage: 5 MG (ONGOING = NOT CHECKED)
     Route: 065
     Dates: start: 20170529, end: 20221230
  98. PYRIDOXINE [Concomitant]
     Active Substance: PYRIDOXINE
     Indication: Product used for unknown indication
     Dosage: UNK (ONGOING = NOT CHECKED)
     Route: 065
     Dates: end: 20221230
  99. PYRIDOXINE [Concomitant]
     Active Substance: PYRIDOXINE
     Dosage: ONGOING = NOT CHECKED
     Route: 065
     Dates: end: 20221230
  100. PYRIDOXINE [Concomitant]
     Active Substance: PYRIDOXINE
     Dosage: ONGOING = NOT CHECKED
     Route: 065
     Dates: end: 20221230
  101. PYRIDOXINE [Concomitant]
     Active Substance: PYRIDOXINE
     Dosage: ONGOING = NOT CHECKED
     Route: 065
     Dates: end: 20221230
  102. PYRIDOXINE [Concomitant]
     Active Substance: PYRIDOXINE
     Dosage: ONGOING = NOT CHECKED
     Route: 065
     Dates: end: 20221230
  103. FILGRASTIM [Concomitant]
     Active Substance: FILGRASTIM
     Indication: Product used for unknown indication
     Dosage: UNK (ONGOING = NOT CHECKED)
     Route: 065
     Dates: end: 20221230
  104. FILGRASTIM [Concomitant]
     Active Substance: FILGRASTIM
     Dosage: UNK, (ONGOING = NOT CHECKED)
     Route: 065
     Dates: end: 20221230
  105. FILGRASTIM [Concomitant]
     Active Substance: FILGRASTIM
     Dosage: UNK, (ONGOING = NOT CHECKED)
     Route: 065
     Dates: end: 20221230
  106. FILGRASTIM [Concomitant]
     Active Substance: FILGRASTIM
     Dosage: UNK, (ONGOING = NOT CHECKED)
     Route: 065
     Dates: end: 20221230
  107. FILGRASTIM [Concomitant]
     Active Substance: FILGRASTIM
     Dosage: ONGOING = NOT CHECKED
     Route: 065
     Dates: end: 20221230
  108. LEVOCETIRIZINE [Concomitant]
     Active Substance: LEVOCETIRIZINE
     Indication: Product used for unknown indication
     Dosage: UNK
     Route: 065
  109. LEVOCETIRIZINE [Concomitant]
     Active Substance: LEVOCETIRIZINE
     Dosage: UNK
     Route: 065
  110. LEVOCETIRIZINE [Concomitant]
     Active Substance: LEVOCETIRIZINE
     Dosage: UNK
     Route: 065
  111. FERRIC CARBOXYMALTOSE [Concomitant]
     Active Substance: FERRIC CARBOXYMALTOSE
     Indication: Product used for unknown indication
     Dosage: UNK
     Route: 065
  112. FERRIC CARBOXYMALTOSE [Concomitant]
     Active Substance: FERRIC CARBOXYMALTOSE
     Dosage: UNK
     Route: 065
     Dates: start: 20221230, end: 20221230
  113. AZITHROMYCIN DIHYDRATE [Concomitant]
     Active Substance: AZITHROMYCIN DIHYDRATE
     Indication: Product used for unknown indication
     Dosage: UNK
     Route: 065
  114. AZITHROMYCIN DIHYDRATE [Concomitant]
     Active Substance: AZITHROMYCIN DIHYDRATE
     Dosage: UNK
     Route: 065
  115. ACETYLCYSTEINE [Concomitant]
     Active Substance: ACETYLCYSTEINE
     Indication: Product used for unknown indication
     Dosage: UNK, (ONGOING = NOT CHECKED)
     Route: 065
     Dates: end: 20221230
  116. ACETYLCYSTEINE [Concomitant]
     Active Substance: ACETYLCYSTEINE
     Dosage: ONGOING = NOT CHECKED
     Route: 065
     Dates: end: 20221230
  117. ACETYLCYSTEINE [Concomitant]
     Active Substance: ACETYLCYSTEINE
     Dosage: UNK, Q3W
     Route: 058
     Dates: start: 20190117
  118. ACETYLCYSTEINE [Concomitant]
     Active Substance: ACETYLCYSTEINE
     Dosage: UNK, ONGOING = NOT CHECKED
     Route: 065
     Dates: start: 20221230
  119. CALCIUM\CHOLECALCIFEROL [Concomitant]
     Active Substance: CALCIUM\CHOLECALCIFEROL
     Indication: HER2 positive breast cancer
     Dosage: UNK, (ONGOING = NOT CHECKED)
     Route: 065
     Dates: start: 20170509, end: 20221230
  120. CALCIUM\CHOLECALCIFEROL [Concomitant]
     Active Substance: CALCIUM\CHOLECALCIFEROL
     Dosage: UNK
     Route: 065
     Dates: start: 20180308, end: 20221230
  121. PREDNISONE [Concomitant]
     Active Substance: PREDNISONE
     Indication: Product used for unknown indication
     Dosage: UNK
     Route: 065
  122. PREGABALIN [Concomitant]
     Active Substance: PREGABALIN
     Indication: Product used for unknown indication
     Dosage: ONGOING = NOT CHECKED
     Route: 065
     Dates: end: 20221230
  123. PREGABALIN [Concomitant]
     Active Substance: PREGABALIN
     Dosage: ONGOING = NOT CHECKED
     Route: 065
     Dates: end: 20221230
  124. AZITHROMYCIN [Concomitant]
     Active Substance: AZITHROMYCIN
     Indication: Product used for unknown indication
     Dosage: UNK
     Route: 065
  125. AZITHROMYCIN [Concomitant]
     Active Substance: AZITHROMYCIN
     Dosage: UNK
     Route: 065
  126. Decalcit [Concomitant]
     Indication: Product used for unknown indication
     Dosage: UNK
     Route: 065
     Dates: start: 20170509, end: 20221230
  127. BUDESONIDE [Concomitant]
     Active Substance: BUDESONIDE
     Indication: Product used for unknown indication
     Dosage: UNK (ONGOING = NOT CHECKED)
     Route: 065
     Dates: end: 20221230
  128. BUDESONIDE [Concomitant]
     Active Substance: BUDESONIDE
     Dosage: UNK (ONGOING = NOT CHECKED)
     Route: 065
     Dates: start: 20221230, end: 20221230
  129. OXYCODONE [Concomitant]
     Active Substance: OXYCODONE
     Indication: Product used for unknown indication
     Dosage: 5 MG, ONGOING = NOT CHECKED5 MG
     Route: 065
     Dates: start: 20221230, end: 20221230

REACTIONS (4)
  - Pancytopenia [Fatal]
  - Pneumonia [Fatal]
  - Pyrexia [Fatal]
  - Febrile neutropenia [Fatal]

NARRATIVE: CASE EVENT DATE: 20221227
